FAERS Safety Report 14446955 (Version 1)
Quarter: 2018Q1

REPORT INFORMATION
  Report Type: Spontaneous
  Country: US (occurrence: US)
  Receive Date: 20180125
  Receipt Date: 20180125
  Transmission Date: 20180509
  Serious: Yes (Other)
  Sender: FDA-Public Use
  Company Number: None

PATIENT
  Sex: Male
  Weight: 99 kg

DRUGS (3)
  1. LIZONAPRIL [Concomitant]
  2. ZYCLARA [Suspect]
     Active Substance: IMIQUIMOD
     Indication: SKIN CANCER
     Dosage: ?          QUANTITY:1 PUMP;?
     Route: 061
     Dates: start: 20180123, end: 20180125
  3. LIPITOR [Concomitant]
     Active Substance: ATORVASTATIN CALCIUM

REACTIONS (3)
  - Influenza like illness [None]
  - Erythema [None]
  - Skin burning sensation [None]

NARRATIVE: CASE EVENT DATE: 20180125
